FAERS Safety Report 9305186 (Version 3)
Quarter: 2013Q2

REPORT INFORMATION
  Report Type: Spontaneous
  Country: JP (occurrence: None)
  Receive Date: 20130327
  Receipt Date: 20130423
  Transmission Date: 20140414
  Serious: Yes (Hospitalization)
  Sender: FDA-Public Use
  Company Number: TCI2013A01221

PATIENT
  Age: 76 Year
  Sex: Male

DRUGS (6)
  1. NESINA [Suspect]
     Indication: TYPE 2 DIABETES MELLITUS
     Dosage: 25 MG (25 MG, 1 IN 1 D) ORAL
     Route: 048
     Dates: start: 20120207
  2. TAKEPRON (LANSOPRAZOLE) [Concomitant]
  3. AMARYL (GLIMEPIRIDE) [Concomitant]
  4. OLMETEC  (OLMESARTAN MEDOXOMIL) [Concomitant]
  5. CONIEL (BENIDIPINE HYDROCHLORIDE) [Concomitant]
  6. BAYASPIRIN (ACETYLSALICYLIC ACID) (ACETYLSALICYLIC ACID) [Concomitant]

REACTIONS (3)
  - Herpes zoster [None]
  - Blood uric acid increased [None]
  - Blood potassium increased [None]
